FAERS Safety Report 7531556-8 (Version None)
Quarter: 2011Q2

REPORT INFORMATION
  Report Type: 
  Country: None (occurrence: None)
  Receive Date: 20110608
  Receipt Date: 20110601
  Transmission Date: 20111010
  Serious: Yes (Death)
  Sender: FDA-Public Use
  Company Number: US-ASTRAZENECA-2011SE33468

PATIENT
  Age: 24 Year
  Sex: Male

DRUGS (2)
  1. SEROQUEL XR [Suspect]
     Dosage: TOTAL DAILY DOSE - 400 MG, FREQUENCY- TWO TIMES A DAY
     Route: 048
  2. METHADONE HCL [Concomitant]

REACTIONS (3)
  - SLEEP APNOEA SYNDROME [None]
  - POST-TRAUMATIC STRESS DISORDER [None]
  - DEATH [None]
